FAERS Safety Report 7171022-5 (Version None)
Quarter: 2010Q4

REPORT INFORMATION
  Report Type: 
  Country: None (occurrence: None)
  Receive Date: 20101123
  Receipt Date: 20100816
  Transmission Date: 20110411
  Serious: No
  Sender: FDA-Public Use
  Company Number: 017392

PATIENT
  Sex: Female
  Weight: 77.1 kg

DRUGS (2)
  1. CIMZIA [Suspect]
     Indication: RHEUMATOID ARTHRITIS
     Dosage: (SUBCUTANEOUS)
     Route: 058
     Dates: start: 20100318, end: 20100708
  2. FORTEO [Concomitant]

REACTIONS (2)
  - ARTHRITIS [None]
  - DRUG INEFFECTIVE [None]
